FAERS Safety Report 5476327-1 (Version None)
Quarter: 2007Q4

REPORT INFORMATION
  Report Type: 
  Country: None (occurrence: None)
  Receive Date: 20071003
  Receipt Date: 20070924
  Transmission Date: 20080405
  Serious: Yes (Hospitalization, Other)
  Sender: FDA-Public Use
  Company Number: US-PFIZER INC-2007045045

PATIENT
  Sex: Male
  Weight: 93 kg

DRUGS (10)
  1. DETROL LA [Suspect]
     Indication: URINARY INCONTINENCE
     Route: 048
  2. DETROL LA [Suspect]
     Indication: INCONTINENCE
  3. ALCOHOL [Suspect]
  4. LEVOTHYROXINE SODIUM [Concomitant]
  5. ZOCOR [Concomitant]
  6. NEXIUM [Concomitant]
  7. DILTIAZEM HYDROCHLORIDE [Concomitant]
  8. PSYLLIUM HYDROPHILIC MUCILLOID [Concomitant]
  9. PROTEIN SUPPLEMENTS [Concomitant]
  10. VITAMINS [Concomitant]

REACTIONS (4)
  - DYSURIA [None]
  - EYE DISORDER [None]
  - PENILE PROSTHESIS INSERTION [None]
  - SCAR EXCISION [None]
